FAERS Safety Report 8987624 (Version 1)
Quarter: 2012Q4

REPORT INFORMATION
  Report Type: 
  Country: US (occurrence: US)
  Receive Date: 20121227
  Receipt Date: 20121227
  Transmission Date: 20130627
  Serious: No
  Sender: FDA-Public Use
  Company Number: US-VERTEX PHARMACEUTICALS INC.-2012-026643

PATIENT
  Age: 50 Year
  Sex: Female

DRUGS (3)
  1. INCIVEK [Suspect]
     Indication: HEPATITIS C
     Dosage: 750 mg, tid
     Route: 048
     Dates: start: 20121128
  2. RIBAVIRIN [Suspect]
     Indication: HEPATITIS C
     Dosage: UNK, bid
     Route: 048
     Dates: start: 20121128
  3. PEGINTERFERON [Suspect]
     Indication: HEPATITIS C
     Dosage: qw
     Route: 058
     Dates: start: 20121128

REACTIONS (3)
  - Vaginal haemorrhage [Not Recovered/Not Resolved]
  - Menopause [Not Recovered/Not Resolved]
  - Off label use [Unknown]
